FAERS Safety Report 10013496 (Version 4)
Quarter: 2014Q2

REPORT INFORMATION
  Report Type: Report from Study
  Country: PL (occurrence: PL)
  Receive Date: 20140314
  Receipt Date: 20140411
  Transmission Date: 20141212
  Serious: Yes (Death, Hospitalization)
  Sender: FDA-Public Use
  Company Number: PL-ASTRAZENECA-2014SE16266

PATIENT
  Age: 23628 Day
  Sex: Male

DRUGS (8)
  1. AZD6140 [Suspect]
     Indication: CORONARY ARTERY DISEASE
     Route: 048
     Dates: start: 20120816
  2. FUROSEMIDUM [Concomitant]
     Indication: CARDIAC FAILURE
     Route: 048
  3. VEROSPIRON [Concomitant]
     Indication: CARDIAC FAILURE
     Route: 048
  4. PRESTARIUM [Concomitant]
     Indication: HYPERTENSION
     Route: 048
  5. AVEDOL [Concomitant]
     Indication: HYPERTENSION
     Route: 048
  6. NOLPAZA [Concomitant]
     Indication: GASTRIC DISORDER
     Route: 048
  7. PREDUCTAL [Concomitant]
     Indication: MYOCARDIAL INFARCTION
     Route: 048
  8. ASA [Concomitant]
     Route: 048

REACTIONS (2)
  - Gastrointestinal haemorrhage [Not Recovered/Not Resolved]
  - Cardiac failure congestive [Fatal]
